FAERS Safety Report 19356025 (Version 1)
Quarter: 2021Q2

REPORT INFORMATION
  Report Type: Spontaneous
  Country: US (occurrence: US)
  Receive Date: 20210601
  Receipt Date: 20210601
  Transmission Date: 20210717
  Serious: Yes (Other)
  Sender: FDA-Public Use
  Company Number: US-CELGENEUS-USA-20210506394

PATIENT
  Age: 80 Year
  Sex: Female
  Weight: 74.91 kg

DRUGS (1)
  1. REVLIMID [Suspect]
     Active Substance: LENALIDOMIDE
     Indication: MYELODYSPLASTIC SYNDROME
     Dosage: 10 MILLIGRAM
     Route: 048
     Dates: start: 20210425, end: 20210501

REACTIONS (5)
  - Full blood count decreased [Unknown]
  - Platelet count decreased [Unknown]
  - Eye disorder [Unknown]
  - Fatigue [Unknown]
  - Immune system disorder [Unknown]

NARRATIVE: CASE EVENT DATE: 202104
